FAERS Safety Report 7122563-8 (Version None)
Quarter: 2010Q4

REPORT INFORMATION
  Report Type: 
  Country: None (occurrence: None)
  Receive Date: 20101122
  Receipt Date: 20101122
  Transmission Date: 20110411
  Serious: Yes (Hospitalization)
  Sender: FDA-Public Use
  Company Number: None

PATIENT
  Sex: Male
  Weight: 42.2 kg

DRUGS (1)
  1. TARCEVA [Suspect]
     Dosage: 9000 MG
     Dates: end: 20101027

REACTIONS (5)
  - ANAEMIA [None]
  - DECREASED APPETITE [None]
  - HEPATIC FAILURE [None]
  - HEPATOTOXICITY [None]
  - INCORRECT DOSE ADMINISTERED [None]
